FAERS Safety Report 21401245 (Version 2)
Quarter: 2022Q4

REPORT INFORMATION
  Report Type: Other
  Country: RO (occurrence: None)
  Receive Date: 20221003
  Receipt Date: 20221006
  Transmission Date: 20230113
  Serious: Yes (Hospitalization)
  Sender: FDA-Public Use
  Company Number: RO-ROCHE-3188239

PATIENT
  Sex: Female
  Weight: 70 kg

DRUGS (1)
  1. PHESGO [Suspect]
     Active Substance: HYALURONIDASE-ZZXF\PERTUZUMAB\TRASTUZUMAB
     Indication: Metastasis
     Dosage: PHESGO 600MG/600MG
     Route: 065
     Dates: start: 20220909

REACTIONS (4)
  - Renal failure [Unknown]
  - Metastases to pleura [Unknown]
  - Diarrhoea [Unknown]
  - Nausea [Unknown]
